FAERS Safety Report 17598151 (Version 1)
Quarter: 2020Q1

REPORT INFORMATION
  Report Type: Spontaneous
  Country: AU (occurrence: AU)
  Receive Date: 20200330
  Receipt Date: 20200330
  Transmission Date: 20200409
  Serious: Yes (Death)
  Sender: FDA-Public Use
  Company Number: AU-FRESENIUS KABI-FK202003081

PATIENT
  Age: 66 Year
  Sex: Male

DRUGS (4)
  1. PACLITAXEL (MANUFACTURER UNKNOWN) [Suspect]
     Active Substance: PACLITAXEL
     Indication: SMALL CELL LUNG CANCER METASTATIC
     Route: 065
     Dates: start: 2018, end: 2018
  2. BEVACIZUMAB. [Suspect]
     Active Substance: BEVACIZUMAB
     Indication: SMALL CELL LUNG CANCER METASTATIC
     Route: 065
     Dates: start: 2018, end: 2018
  3. ATEZOLIZUMAB. [Suspect]
     Active Substance: ATEZOLIZUMAB
     Indication: SMALL CELL LUNG CANCER METASTATIC
     Route: 065
     Dates: start: 2018, end: 2018
  4. CARBOPLATIN. [Suspect]
     Active Substance: CARBOPLATIN
     Indication: SMALL CELL LUNG CANCER METASTATIC
     Route: 065
     Dates: start: 2018, end: 2018

REACTIONS (1)
  - Gastrointestinal perforation [Fatal]
